FAERS Safety Report 14574138 (Version 1)
Quarter: 2018Q1

REPORT INFORMATION
  Report Type: Spontaneous
  Country: IN (occurrence: IN)
  Receive Date: 20180226
  Receipt Date: 20180226
  Transmission Date: 20180509
  Serious: Yes (Other)
  Sender: FDA-Public Use
  Company Number: IN-PFIZER INC-2018079893

PATIENT
  Sex: Female
  Weight: 84 kg

DRUGS (1)
  1. CRIZALK [Suspect]
     Active Substance: CRIZOTINIB
     Indication: LUNG ADENOCARCINOMA
     Dosage: 250 MG, 2X/DAY
     Route: 048
     Dates: start: 201609

REACTIONS (10)
  - Lymphocyte count increased [Unknown]
  - Mean cell haemoglobin decreased [Unknown]
  - Blood bilirubin decreased [Unknown]
  - Red blood cell count decreased [Unknown]
  - Synovial cyst [Unknown]
  - Mean cell volume decreased [Unknown]
  - Blood alkaline phosphatase increased [Unknown]
  - Monocyte count increased [Unknown]
  - Red cell distribution width increased [Unknown]
  - Alanine aminotransferase increased [Unknown]

NARRATIVE: CASE EVENT DATE: 20171016
